FAERS Safety Report 8637629 (Version 9)
Quarter: 2014Q2

REPORT INFORMATION
  Report Type: Report from Study
  Country: CA (occurrence: CA)
  Receive Date: 20120627
  Receipt Date: 20140609
  Transmission Date: 20141212
  Serious: Yes (Other)
  Sender: FDA-Public Use
  Company Number: PHHY2012CA050893

PATIENT
  Sex: Male

DRUGS (4)
  1. SANDOSTATIN LAR [Suspect]
     Indication: COLON NEOPLASM
     Dosage: 10 MG, EVERY 3 WEEKS
     Route: 030
     Dates: start: 20120531
  2. SANDOSTATIN LAR [Suspect]
     Dosage: 30 MG, UNK
     Route: 030
  3. SANDOSTATIN LAR [Suspect]
     Dosage: 40 MG, EVERY 4 WEEKS, QMO
     Route: 030
     Dates: end: 20140506
  4. IRINOTECAN [Concomitant]
     Dosage: UNK UKN, UNK

REACTIONS (7)
  - Hypovolaemic shock [Unknown]
  - Diarrhoea [Recovered/Resolved]
  - Blood pressure systolic increased [Unknown]
  - Blood pressure decreased [Unknown]
  - Clostridium difficile infection [Unknown]
  - Infection parasitic [Unknown]
  - Vomiting [Unknown]
